FAERS Safety Report 6849175-5 (Version None)
Quarter: 2010Q3

REPORT INFORMATION
  Report Type: 
  Country: None (occurrence: None)
  Receive Date: 20100716
  Receipt Date: 20100708
  Transmission Date: 20110219
  Serious: Yes (Hospitalization)
  Sender: FDA-Public Use
  Company Number: PHHO2010DE01992

PATIENT
  Sex: Male
  Weight: 101 kg

DRUGS (7)
  1. AFINITOR [Suspect]
     Indication: TUBEROUS SCLEROSIS
     Dosage: CODE NOT BROKEN
     Route: 048
     Dates: start: 20091118
  2. VALPROIC ACID [Suspect]
     Indication: CONVULSION PROPHYLAXIS
  3. PREGABALIN [Suspect]
     Indication: CONVULSION PROPHYLAXIS
  4. VITAMIN D [Concomitant]
  5. FOSAMAX [Concomitant]
  6. IBUPROFEN [Concomitant]
  7. OMEPRAZOLE [Concomitant]

REACTIONS (8)
  - ARTHRALGIA [None]
  - BONE DISORDER [None]
  - BONE MARROW OEDEMA [None]
  - COMPLEX REGIONAL PAIN SYNDROME [None]
  - DEEP VEIN THROMBOSIS [None]
  - JOINT EFFUSION [None]
  - JOINT STABILISATION [None]
  - OSTEOPENIA [None]
